FAERS Safety Report 5889289-X (Version None)
Quarter: 2008Q3

REPORT INFORMATION
  Report Type: 
  Country: None (occurrence: None)
  Receive Date: 20080919
  Receipt Date: 20080909
  Transmission Date: 20090109
  Serious: Yes (Hospitalization)
  Sender: FDA-Public Use
  Company Number: FR-WYE-H04747708

PATIENT
  Age: 50 Year
  Sex: Male

DRUGS (6)
  1. PANTOPRAZOLE SODIUM [Suspect]
     Route: 048
     Dates: start: 20070913, end: 20070927
  2. TRAMADOL HCL [Concomitant]
     Route: 048
  3. CORTANCYL [Concomitant]
     Route: 048
     Dates: start: 20070913, end: 20070916
  4. CORTANCYL [Concomitant]
     Route: 048
     Dates: start: 20070917, end: 20070923
  5. CORTANCYL [Concomitant]
     Route: 048
     Dates: start: 20070924, end: 20070927
  6. EFFEXOR [Concomitant]
     Indication: DEPRESSION
     Dates: start: 20020101

REACTIONS (1)
  - SUICIDE ATTEMPT [None]
